FAERS Safety Report 22675310 (Version 2)
Quarter: 2024Q1

REPORT INFORMATION
  Report Type: Spontaneous
  Country: US (occurrence: US)
  Receive Date: 20230706
  Receipt Date: 20240109
  Transmission Date: 20240409
  Serious: Yes (Other)
  Sender: FDA-Public Use
  Company Number: US-BRISTOL-MYERS SQUIBB COMPANY-2023-093865

PATIENT
  Age: 53 Year
  Sex: Male

DRUGS (1)
  1. LENALIDOMIDE [Suspect]
     Active Substance: LENALIDOMIDE
     Indication: Plasma cell myeloma
     Dosage: TAKE 1 CAPSULE BY MOUTH EVERY DAY FOR 28 DAYS
     Route: 048
     Dates: end: 20230630

REACTIONS (10)
  - Influenza [Recovering/Resolving]
  - Pneumonia [Unknown]
  - Pain [Recovering/Resolving]
  - Asthenia [Unknown]
  - Somnolence [Unknown]
  - Depression [Unknown]
  - Decreased interest [Unknown]
  - Decreased appetite [Recovering/Resolving]
  - Fatigue [Recovering/Resolving]
  - Anxiety [Recovering/Resolving]
